FAERS Safety Report 9870316 (Version 2)
Quarter: 2014Q1

REPORT INFORMATION
  Report Type: Spontaneous
  Country: NO (occurrence: NO)
  Receive Date: 20140205
  Receipt Date: 20140205
  Transmission Date: 20141002
  Serious: Yes (Other)
  Sender: FDA-Public Use
  Company Number: NO-PFIZER INC-2014031134

PATIENT
  Sex: Female

DRUGS (2)
  1. DOXYCYCLINE HYCLATE [Suspect]
  2. RIFAMPICIN [Suspect]

REACTIONS (11)
  - Asthenia [Not Recovered/Not Resolved]
  - Cold sweat [Not Recovered/Not Resolved]
  - Dizziness [Not Recovered/Not Resolved]
  - Fatigue [Not Recovered/Not Resolved]
  - Pyrexia [Not Recovered/Not Resolved]
  - Headache [Not Recovered/Not Resolved]
  - Hot flush [Not Recovered/Not Resolved]
  - Hyperacusis [Not Recovered/Not Resolved]
  - Nausea [Not Recovered/Not Resolved]
  - Arthralgia [Not Recovered/Not Resolved]
  - Palpitations [Not Recovered/Not Resolved]
